FAERS Safety Report 20226422 (Version 1)
Quarter: 2021Q4

REPORT INFORMATION
  Report Type: Spontaneous
  Country: FR (occurrence: FR)
  Receive Date: 20211224
  Receipt Date: 20211224
  Transmission Date: 20220304
  Serious: Yes (Hospitalization)
  Sender: FDA-Public Use
  Company Number: None

PATIENT
  Age: 36 Year
  Sex: Female
  Weight: 73 kg

DRUGS (1)
  1. LYRICA [Suspect]
     Active Substance: PREGABALIN
     Indication: Pelvic pain
     Dosage: 1 DF, 2X/DAY (IN MORNING AND IN EVENING)
     Route: 048
     Dates: start: 20211028, end: 20211126

REACTIONS (6)
  - Vertigo [Recovering/Resolving]
  - Somnolence [Recovering/Resolving]
  - Depersonalisation/derealisation disorder [Recovering/Resolving]
  - Disturbance in attention [Recovering/Resolving]
  - Dyspepsia [Recovering/Resolving]
  - Amnesia [Recovering/Resolving]

NARRATIVE: CASE EVENT DATE: 20211101
